FAERS Safety Report 24399816 (Version 2)
Quarter: 2024Q4

REPORT INFORMATION
  Report Type: Spontaneous
  Country: US (occurrence: US)
  Receive Date: 20241005
  Receipt Date: 20241009
  Transmission Date: 20250115
  Serious: No
  Sender: SANDOZ
  Company Number: US-002147023-NVSC2023US058918

PATIENT
  Sex: Female

DRUGS (12)
  1. CLOBETASOL [Suspect]
     Active Substance: CLOBETASOL
     Indication: Psoriasis
     Dosage: 0.05 MG TOPICAL (APPLY TO PSORIASIS MONDAY TO FRIDAY, OFF WEEKENDS)
     Route: 061
     Dates: start: 20220118, end: 20220404
  2. COSENTYX [Suspect]
     Active Substance: SECUKINUMAB
     Indication: Psoriasis
     Dosage: 300 MG, OTHER (TWO 150 MG/ML PENS SUBCUTANEOUSLY)
     Route: 058
  3. COSENTYX [Suspect]
     Active Substance: SECUKINUMAB
     Indication: Psoriatic arthropathy
  4. METHOTREXATE [Suspect]
     Active Substance: METHOTREXATE
     Indication: Psoriasis
     Dosage: UNK, QW (TAKE 6 PILLS, QW)
     Route: 048
     Dates: start: 20160209, end: 20160913
  5. METHOTREXATE [Suspect]
     Active Substance: METHOTREXATE
     Indication: Psoriatic arthropathy
  6. MINOXIDIL [Suspect]
     Active Substance: MINOXIDIL
     Dosage: 1 DF, QD
     Route: 048
     Dates: start: 20230130
  7. MINOXIDIL [Suspect]
     Active Substance: MINOXIDIL
     Indication: Alopecia
     Dosage: 2.5 MG
     Route: 048
  8. TRIAMCINOLONE ACETONIDE [Suspect]
     Active Substance: TRIAMCINOLONE ACETONIDE
     Indication: Dermatitis contact
     Dosage: 0.1 %
     Route: 061
  9. TRIAMCINOLONE ACETONIDE [Suspect]
     Active Substance: TRIAMCINOLONE ACETONIDE
     Indication: Psoriatic arthropathy
     Dosage: 0.1 %, BID (MONDAY TO FRIDAY, OFF WEEKNDS)
     Route: 065
     Dates: start: 20230306
  10. COSENTYX [Concomitant]
     Active Substance: SECUKINUMAB
     Indication: Psoriasis
     Route: 065
  11. COSENTYX [Concomitant]
     Active Substance: SECUKINUMAB
     Indication: Psoriasis
     Route: 065
  12. COSENTYX [Concomitant]
     Active Substance: SECUKINUMAB
     Indication: Psoriatic arthropathy

REACTIONS (9)
  - Arthropathy [Unknown]
  - Eczema [Unknown]
  - Abdominal discomfort [Unknown]
  - C-reactive protein increased [Unknown]
  - White blood cell count decreased [Unknown]
  - Diarrhoea [Unknown]
  - Guttate psoriasis [Unknown]
  - Dermatitis contact [Unknown]
  - Treatment failure [Unknown]
